FAERS Safety Report 11452871 (Version 1)
Quarter: 2015Q3

REPORT INFORMATION
  Report Type: Report from Study
  Country: US (occurrence: US)
  Receive Date: 20150903
  Receipt Date: 20150903
  Transmission Date: 20151125
  Serious: Yes (Hospitalization)
  Sender: FDA-Public Use
  Company Number: US-VERTEX PHARMACEUTICALS-2015-003051

PATIENT
  Age: 26 Year
  Sex: Male

DRUGS (7)
  1. AQUADEKS [Concomitant]
  2. CAYSTON [Concomitant]
     Active Substance: AZTREONAM
  3. ORKAMBI [Suspect]
     Active Substance: IVACAFTOR\LUMACAFTOR
     Indication: CYSTIC FIBROSIS
     Dosage: 400-250 MG, BID
     Route: 048
     Dates: start: 20150710
  4. ZENPEP [Concomitant]
     Active Substance: PANCRELIPASE\PANCRELIPASE AMYLASE\PANCRELIPASE LIPASE\PANCRELIPASE PROTEASE
  5. SODIUM CHLORIDE. [Concomitant]
     Active Substance: SODIUM CHLORIDE
  6. ORKAMBI [Suspect]
     Active Substance: IVACAFTOR\LUMACAFTOR
     Dosage: 200MG/125MG, BID
     Route: 048
     Dates: start: 20150721
  7. PULMOSAL [Concomitant]

REACTIONS (7)
  - Cystic fibrosis [Unknown]
  - Cough [Recovered/Resolved]
  - Haemoptysis [Recovered/Resolved]
  - Pyrexia [Unknown]
  - Respiration abnormal [Recovered/Resolved]
  - Abdominal distension [Unknown]
  - Infection [Unknown]

NARRATIVE: CASE EVENT DATE: 20150722
